FAERS Safety Report 5743066-9 (Version None)
Quarter: 2008Q2

REPORT INFORMATION
  Report Type: 
  Country: None (occurrence: None)
  Receive Date: 20080519
  Receipt Date: 20080513
  Transmission Date: 20081010
  Serious: Yes (Hospitalization, Other)
  Sender: FDA-Public Use
  Company Number: US-ASTRAZENECA-2008UW05136

PATIENT
  Sex: Male

DRUGS (2)
  1. SEROQUEL [Suspect]
     Indication: MENTAL DISORDER
     Dosage: 200-400 MG DOSE
     Route: 048
  2. RISPERDAL [Concomitant]
     Indication: MENTAL DISORDER

REACTIONS (1)
  - VENOUS THROMBOSIS [None]
